FAERS Safety Report 9654327 (Version 1)
Quarter: 2013Q4

REPORT INFORMATION
  Report Type: Spontaneous
  Country: US (occurrence: US)
  Receive Date: 20131029
  Receipt Date: 20131029
  Transmission Date: 20140711
  Serious: Yes (Other)
  Sender: FDA-Public Use
  Company Number: US-UCBSA-101535

PATIENT
  Age: 3 Year
  Sex: Female

DRUGS (2)
  1. VIMPAT [Suspect]
     Indication: CONVULSION
  2. VIMPAT [Suspect]
     Indication: CONVULSION
     Dosage: DOSE: HALF PILL INCREASED
     Dates: start: 2013

REACTIONS (3)
  - Convulsion [Recovering/Resolving]
  - Mood swings [Unknown]
  - Sleep disorder [Unknown]
